FAERS Safety Report 6308818-5 (Version None)
Quarter: 2009Q3

REPORT INFORMATION
  Report Type: 
  Country: None (occurrence: None)
  Receive Date: 20090813
  Receipt Date: 20080818
  Transmission Date: 20100115
  Serious: No
  Sender: FDA-Public Use
  Company Number: US-ALLERGAN-0810481US

PATIENT
  Age: 89 Year
  Sex: Female

DRUGS (13)
  1. COMBIGAN [Suspect]
     Indication: GLAUCOMA
     Dosage: 1 GTT, UNK
     Route: 047
     Dates: start: 20080101, end: 20080801
  2. ZOLOFT [Concomitant]
     Dosage: 12.5 MG, QD
  3. LASIX [Concomitant]
     Dosage: 20 MG, BID
  4. COREG [Concomitant]
     Dosage: 12.5 MG, QD
  5. DIGOXIN [Concomitant]
     Dosage: 0.125 MG, QD
  6. DIOVAN [Concomitant]
     Dosage: 80 MG, QD
  7. NORVASC [Concomitant]
     Dosage: 10 MG, QD
  8. LEVOXYL [Concomitant]
     Dosage: 0.125 MG, QD
  9. CRESTOR [Concomitant]
     Dosage: 5 MG, QD
  10. OSCAL [Concomitant]
  11. VITAMIN E [Concomitant]
  12. CENTRUM SILVER [Concomitant]
  13. CALCIUM [Concomitant]

REACTIONS (2)
  - PRURITUS GENERALISED [None]
  - RASH GENERALISED [None]
